FAERS Safety Report 13333309 (Version 1)
Quarter: 2017Q1

REPORT INFORMATION
  Report Type: Spontaneous
  Country: FR (occurrence: FR)
  Receive Date: 20170314
  Receipt Date: 20170314
  Transmission Date: 20170428
  Serious: Yes (Life-Threatening)
  Sender: FDA-Public Use
  Company Number: FR-TEVA-746270ROM

PATIENT
  Age: 44 Year
  Sex: Female

DRUGS (19)
  1. DOXORUBICINE TEVA [Suspect]
     Active Substance: DOXORUBICIN
     Dosage: 50 MG/M2 DAILY; SECOND  COURSE
     Route: 042
     Dates: start: 20131010, end: 20131010
  2. DOXORUBICINE TEVA [Suspect]
     Active Substance: DOXORUBICIN
     Dosage: 50 MG/M2 DAILY; FIFTH COURSE
     Route: 042
     Dates: start: 20131219, end: 20131219
  3. DOXORUBICINE TEVA [Suspect]
     Active Substance: DOXORUBICIN
     Dosage: 50 MG/M2 DAILY; THIRD COURSE
     Route: 042
     Dates: start: 20131031, end: 20131031
  4. DOXORUBICINE TEVA [Suspect]
     Active Substance: DOXORUBICIN
     Dosage: 50 MG/M2 DAILY; FOURTH COURSE
     Route: 042
     Dates: start: 20131128, end: 20131128
  5. TAXOTERE [Suspect]
     Active Substance: DOCETAXEL
     Dosage: 75 MG/M2 DAILY; FOURTH COURSE
     Route: 042
     Dates: start: 20131128, end: 20131128
  6. ENDOXAN [Suspect]
     Active Substance: CYCLOPHOSPHAMIDE
     Dosage: 500 MG/M2 DAILY; SECOND  COURSE
     Route: 042
     Dates: start: 20131010, end: 20131010
  7. TAXOTERE [Suspect]
     Active Substance: DOCETAXEL
     Indication: BREAST CANCER
     Dosage: 75 MG/M2 DAILY; FIRST COURSE, 75MG/M2, CYCLICAL
     Route: 042
     Dates: start: 20130919, end: 20130919
  8. TAXOTERE [Suspect]
     Active Substance: DOCETAXEL
     Dosage: 75 MG/M2 DAILY; FIFTH COURSE
     Route: 042
     Dates: start: 20131219, end: 20131219
  9. TAMOXIFENE [Concomitant]
     Active Substance: TAMOXIFEN
     Indication: BREAST CANCER
     Route: 048
  10. DOXORUBICINE TEVA [Suspect]
     Active Substance: DOXORUBICIN
     Dosage: 50 MG/M2 DAILY; SIXTH COURSE
     Route: 042
     Dates: start: 20140109, end: 20140109
  11. ENDOXAN [Suspect]
     Active Substance: CYCLOPHOSPHAMIDE
     Indication: BREAST CANCER
     Dosage: 500 MG/M2 DAILY; FIRST COURSE, 500MG/M2, CYCLICAL
     Route: 042
     Dates: start: 20130919, end: 20130919
  12. ENDOXAN [Suspect]
     Active Substance: CYCLOPHOSPHAMIDE
     Dosage: 500 MG/M2 DAILY; THIRD COURSE
     Route: 042
     Dates: start: 20131031, end: 20131031
  13. TAXOTERE [Suspect]
     Active Substance: DOCETAXEL
     Dosage: 75 MG/M2 DAILY; SECOND  COURSE
     Route: 042
     Dates: start: 20131010, end: 20131010
  14. TAXOTERE [Suspect]
     Active Substance: DOCETAXEL
     Dosage: 75 MG/M2 DAILY; THIRD COURSE
     Route: 042
     Dates: start: 20131031, end: 20131031
  15. DOXORUBICINE TEVA [Suspect]
     Active Substance: DOXORUBICIN
     Indication: BREAST CANCER
     Dosage: 50 MG/M2 DAILY; FIRST COURSE, 50 MG/M2, CYCLICAL
     Route: 042
     Dates: start: 20130919, end: 20130919
  16. ENDOXAN [Suspect]
     Active Substance: CYCLOPHOSPHAMIDE
     Dosage: 500 MG/M2 DAILY; FOURTH COURSE
     Route: 042
     Dates: start: 20131128, end: 20131128
  17. ENDOXAN [Suspect]
     Active Substance: CYCLOPHOSPHAMIDE
     Dosage: 500 MG/M2 DAILY; FIFTH COURSE
     Route: 042
     Dates: start: 20131219, end: 20131219
  18. ENDOXAN [Suspect]
     Active Substance: CYCLOPHOSPHAMIDE
     Dosage: 500 MG/M2 DAILY; SIXTH COURSE
     Route: 042
     Dates: start: 20140109, end: 20140109
  19. TAXOTERE [Suspect]
     Active Substance: DOCETAXEL
     Dosage: 75 MG/M2 DAILY; SIXTH COURSE
     Route: 042
     Dates: start: 20140109, end: 20140109

REACTIONS (3)
  - Ventricular fibrillation [Recovered/Resolved with Sequelae]
  - Congestive cardiomyopathy [Recovered/Resolved with Sequelae]
  - Cardio-respiratory arrest [Recovered/Resolved]

NARRATIVE: CASE EVENT DATE: 20140601
